FAERS Safety Report 8620924-9 (Version None)
Quarter: 2012Q3

REPORT INFORMATION
  Report Type: 
  Country: None (occurrence: None)
  Receive Date: 20120824
  Receipt Date: 20120820
  Transmission Date: 20120928
  Serious: Yes (Other)
  Sender: FDA-Public Use
  Company Number: US-PFIZER INC-2012204035

PATIENT
  Age: 61 Year
  Sex: Female
  Weight: 81.633 kg

DRUGS (1)
  1. VIAGRA [Suspect]
     Indication: PULMONARY HYPERTENSION
     Dosage: UNK
     Dates: start: 20120305, end: 20120306

REACTIONS (7)
  - OFF LABEL USE [None]
  - MUSCLE SPASMS [None]
  - DYSKINESIA [None]
  - URTICARIA [None]
  - PRURITUS [None]
  - TREMOR [None]
  - BALANCE DISORDER [None]
